FAERS Safety Report 11854088 (Version 2)
Quarter: 2015Q4

REPORT INFORMATION
  Report Type: Spontaneous
  Country: RO (occurrence: RO)
  Receive Date: 20151219
  Receipt Date: 20151221
  Transmission Date: 20160305
  Serious: Yes (Hospitalization, Other)
  Sender: FDA-Public Use
  Company Number: RO-ABBVIE-15K-135-1518758-00

PATIENT
  Age: 51 Year
  Sex: Female
  Weight: 59 kg

DRUGS (4)
  1. LEFLUNOMID [Suspect]
     Active Substance: LEFLUNOMIDE
     Route: 048
     Dates: start: 20150901, end: 20150915
  2. HUMIRA [Suspect]
     Active Substance: ADALIMUMAB
     Indication: RHEUMATOID ARTHRITIS
     Route: 058
     Dates: start: 20141203, end: 20150717
  3. HUMIRA [Suspect]
     Active Substance: ADALIMUMAB
     Route: 058
     Dates: start: 20150901, end: 20150914
  4. LEFLUNOMID [Suspect]
     Active Substance: LEFLUNOMIDE
     Indication: RHEUMATOID ARTHRITIS
     Route: 048
     Dates: start: 201001

REACTIONS (27)
  - Viral pericarditis [Recovered/Resolved]
  - Rheumatoid arthritis [Unknown]
  - Inflammation [Unknown]
  - Sinus tachycardia [Unknown]
  - Dry mouth [Unknown]
  - Chest discomfort [Unknown]
  - Ventricular hypertrophy [Unknown]
  - Anaemia [Unknown]
  - Thyroiditis chronic [Unknown]
  - Hypochromic anaemia [Unknown]
  - Joint dislocation [Unknown]
  - Interstitial lung disease [Unknown]
  - Cardiac murmur [Unknown]
  - Pleuropericarditis [Recovered/Resolved]
  - Musculoskeletal stiffness [Unknown]
  - Respiratory failure [Unknown]
  - Dry eye [Unknown]
  - Fatigue [Unknown]
  - Mycobacterium tuberculosis complex test positive [Unknown]
  - Xerophthalmia [Unknown]
  - Ischaemic cardiomyopathy [Unknown]
  - Osteoporosis [Unknown]
  - Normochromic normocytic anaemia [Unknown]
  - Lymphocytosis [Unknown]
  - Postoperative adhesion [Unknown]
  - Dizziness [Unknown]
  - Scoliosis [Unknown]

NARRATIVE: CASE EVENT DATE: 201509
